FAERS Safety Report 5193429-8 (Version None)
Quarter: 2006Q4

REPORT INFORMATION
  Report Type: 
  Country: None (occurrence: None)
  Receive Date: 20061228
  Receipt Date: 20060926
  Transmission Date: 20070319
  Serious: No
  Sender: FDA-Public Use
  Company Number: US-GLAXOSMITHKLINE-A0621468A

PATIENT
  Age: 57 Year
  Sex: Male

DRUGS (6)
  1. TRIZIVIR [Suspect]
     Indication: HIV INFECTION
     Dosage: 300MG TWICE PER DAY
     Route: 048
     Dates: start: 20040101
  2. VIRAMUNE [Concomitant]
  3. VIREAD [Concomitant]
  4. NORVASC [Concomitant]
  5. CRESTOR [Concomitant]
  6. MIRTAZAPINE [Concomitant]

REACTIONS (1)
  - TINNITUS [None]
